FAERS Safety Report 8796055 (Version 1)
Quarter: 2012Q4

REPORT INFORMATION
  Report Type: 
  Country: US (occurrence: US)
  Receive Date: 20120920
  Receipt Date: 20120920
  Transmission Date: 20130627
  Serious: Yes (Other)
  Sender: FDA-Public Use
  Company Number: US-JNJFOC-20120906732

PATIENT
  Age: 64 Year
  Sex: Female
  Weight: 87.54 kg

DRUGS (5)
  1. BENADRYL ALLERGY DYE FREE SOFT GEL [Suspect]
     Indication: SEASONAL ALLERGY
     Dosage: BENADRYL DYE FREE LIQUID GELS 24S

USA 312547170215 1254717021USA
     Route: 048
     Dates: start: 20120904, end: 20120911
  2. GLYBURIDE [Concomitant]
     Indication: BLOOD GLUCOSE INCREASED
     Route: 065
  3. AN UNKNOWN MEDICATION [Concomitant]
     Indication: BLOOD GLUCOSE INCREASED
     Route: 065
  4. ATENOLOL [Concomitant]
     Indication: HYPERTENSION
     Route: 065
  5. AN UNKNOWN MEDICATION [Concomitant]
     Indication: HYPERTENSION
     Route: 065

REACTIONS (1)
  - Blood glucose increased [Unknown]
